FAERS Safety Report 8180742-5 (Version None)
Quarter: 2012Q1

REPORT INFORMATION
  Report Type: 
  Country: None (occurrence: None)
  Receive Date: 20120301
  Receipt Date: 20120301
  Transmission Date: 20120608
  Serious: Yes (Other)
  Sender: FDA-Public Use
  Company Number: None

PATIENT
  Age: 66 Year
  Sex: Male
  Weight: 61.2356 kg

DRUGS (2)
  1. HALFLYTELY [Suspect]
     Indication: COLONOSCOPY
     Dates: start: 20120215
  2. HALFLYTELY [Suspect]
     Indication: BOWEL PREPARATION
     Dates: start: 20120215

REACTIONS (5)
  - FEELING COLD [None]
  - ASTHENIA [None]
  - VOMITING [None]
  - DYSSTASIA [None]
  - DIZZINESS [None]
